APPROVED DRUG PRODUCT: SODIUM PENTOBARBITAL
Active Ingredient: PENTOBARBITAL SODIUM
Strength: 100MG
Dosage Form/Route: TABLET;ORAL
Application: A084238 | Product #001
Applicant: NEXGEN PHARMA INC
Approved: Approved Prior to Jan 1, 1982 | RLD: No | RS: No | Type: DISCN